FAERS Safety Report 16146817 (Version 2)
Quarter: 2019Q2

REPORT INFORMATION
  Report Type: Spontaneous
  Country: ES (occurrence: ES)
  Receive Date: 20190402
  Receipt Date: 20190426
  Transmission Date: 20190711
  Serious: Yes (Other)
  Sender: FDA-Public Use
  Company Number: ES-BAYER-2019-060265

PATIENT
  Age: 67 Year
  Sex: Male

DRUGS (4)
  1. STIVARGA [Suspect]
     Active Substance: REGORAFENIB
     Indication: HEPATOCELLULAR CARCINOMA
     Dosage: 160 MG, QD FOR 3 EVERY 4 WEEKS
     Dates: start: 201702
  2. NEXAVAR [Suspect]
     Active Substance: SORAFENIB
     Indication: HEPATOCELLULAR CARCINOMA
     Dosage: 400 MG, QD
     Route: 048
     Dates: end: 201702
  3. STIVARGA [Suspect]
     Active Substance: REGORAFENIB
     Indication: HEPATOCELLULAR CARCINOMA
     Dosage: 80 MG, QD
     Dates: end: 201804
  4. NEXAVAR [Suspect]
     Active Substance: SORAFENIB
     Indication: HEPATOCELLULAR CARCINOMA
     Dosage: 400 MG, BID
     Route: 048
     Dates: start: 201609

REACTIONS (12)
  - Hepatocellular carcinoma [None]
  - Hepatocellular carcinoma [None]
  - Metastases to thorax [None]
  - Rash [None]
  - Palmar-plantar erythrodysaesthesia syndrome [None]
  - Diarrhoea [None]
  - Metastases to chest wall [None]
  - Hepatocellular carcinoma [None]
  - Fatigue [None]
  - Metastasis [None]
  - Hypertension [None]
  - Rash [None]

NARRATIVE: CASE EVENT DATE: 201610
